FAERS Safety Report 7322007-7 (Version None)
Quarter: 2011Q1

REPORT INFORMATION
  Report Type: 
  Country: None (occurrence: None)
  Receive Date: 20110228
  Receipt Date: 20110214
  Transmission Date: 20110831
  Serious: Yes (Disabling)
  Sender: FDA-Public Use
  Company Number: NL-CELGENEUS-114-50794-11012956

PATIENT
  Sex: Female

DRUGS (1)
  1. VIDAZA [Suspect]
     Dosage: 125 MILLIGRAM
     Route: 058
     Dates: start: 20110110, end: 20110118

REACTIONS (1)
  - DEMENTIA [None]
